FAERS Safety Report 7870351-7 (Version None)
Quarter: 2011Q3

REPORT INFORMATION
  Report Type: 
  Country: None (occurrence: None)
  Receive Date: 20110916
  Receipt Date: 20110310
  Transmission Date: 20111222
  Serious: Yes (Death)
  Sender: FDA-Public Use
  Company Number: 114057

PATIENT
  Age: 64 Year
  Sex: Female

DRUGS (2)
  1. IDARUBICIN HYDROCHLORIDE [Suspect]
  2. CYTARABINE [Suspect]
     Indication: ACUTE LEUKAEMIA

REACTIONS (2)
  - DRUG INEFFECTIVE [None]
  - DEATH [None]
